FAERS Safety Report 6186546-7 (Version None)
Quarter: 2009Q2

REPORT INFORMATION
  Report Type: 
  Country: None (occurrence: None)
  Receive Date: 20090512
  Receipt Date: 20090430
  Transmission Date: 20091009
  Serious: Yes (Other)
  Sender: FDA-Public Use
  Company Number: PHHY2009CH16526

PATIENT
  Age: 65 Year
  Sex: Male

DRUGS (11)
  1. LEPONEX [Suspect]
     Dosage: 18.75 MG/DAY
     Dates: start: 20080301
  2. KEPPRA [Suspect]
     Indication: EPILEPSY
     Dosage: 250 MG/DAY
     Dates: start: 20090101
  3. KEPPRA [Suspect]
     Dosage: 1250 MG/DAY
     Dates: start: 20090312
  4. KEPPRA [Suspect]
     Dosage: 1000 MG/DAY
  5. KEPPRA [Suspect]
     Dosage: 750 MG/DAY
     Dates: start: 20090402
  6. RIVOTRIL [Suspect]
     Indication: EPILEPSY
     Dosage: 1 MG/DAY
     Dates: start: 20090316
  7. RIVOTRIL [Suspect]
     Dosage: 1 MG/DAY
     Dates: start: 20090402
  8. RIVOTRIL [Suspect]
     Dosage: 0.25 MG/DAY
  9. TORSEMIDE [Concomitant]
     Dosage: 2.5 MG/DAY
     Dates: start: 20080801
  10. CLEXANE [Concomitant]
     Dosage: 40 MG
     Route: 058
  11. DAFALGAN [Concomitant]
     Dosage: 4000 MG/DAY

REACTIONS (10)
  - ABNORMAL BEHAVIOUR [None]
  - DYSPHAGIA [None]
  - EPILEPSY [None]
  - HEPATIC ENZYME INCREASED [None]
  - HICCUPS [None]
  - MYOCLONUS [None]
  - PERSONALITY DISORDER [None]
  - SALIVARY HYPERSECRETION [None]
  - SOMNOLENCE [None]
  - URINARY TRACT INFECTION [None]
